FAERS Safety Report 8013127-2 (Version None)
Quarter: 2011Q4

REPORT INFORMATION
  Report Type: 
  Country: None (occurrence: None)
  Receive Date: 20111229
  Receipt Date: 20111220
  Transmission Date: 20120403
  Serious: Yes (Life-Threatening)
  Sender: FDA-Public Use
  Company Number: MM-BAYER-2011-123958

PATIENT
  Sex: Male
  Weight: 68 kg

DRUGS (5)
  1. ULTRAVIST 370 [Suspect]
     Indication: COMPUTERISED TOMOGRAM
     Dosage: SKIN TEST 0.2ML FOR 15 MINS, IV TEST 1 ML WITH NS FOR 15 MINS. INJECTION RATE: 3 ML/S
     Route: 042
  2. DX [Concomitant]
  3. HYDROCORTISONE [Concomitant]
  4. DOPAMINE HCL [Concomitant]
  5. OXYGEN [Concomitant]

REACTIONS (8)
  - CHEST DISCOMFORT [None]
  - HEART RATE INCREASED [None]
  - DYSPNOEA [None]
  - PALPITATIONS [None]
  - BURNING SENSATION [None]
  - HYPOTENSION [None]
  - HYPERHIDROSIS [None]
  - OXYGEN SATURATION DECREASED [None]
